FAERS Safety Report 12522834 (Version 2)
Quarter: 2022Q2

REPORT INFORMATION
  Report Type: Report from Study
  Country: MX (occurrence: MX)
  Receive Date: 20160701
  Receipt Date: 20220603
  Transmission Date: 20220721
  Serious: Yes (Other)
  Sender: FDA-Public Use
  Company Number: PHHY2015MX113379

PATIENT
  Sex: Female
  Weight: 70.5 kg

DRUGS (8)
  1. EXFORGE HCT [Suspect]
     Active Substance: AMLODIPINE BESYLATE\HYDROCHLOROTHIAZIDE\VALSARTAN
     Indication: Hypertension
     Dosage: 0.5 DOSAGE FORM, QD (10/320/25 MG)
     Route: 048
     Dates: start: 2012
  2. EXFORGE HCT [Suspect]
     Active Substance: AMLODIPINE BESYLATE\HYDROCHLOROTHIAZIDE\VALSARTAN
     Dosage: 1 DF (AMLODIPINE 5 MG AND VALSARTAN 160 MG), UNK
     Route: 065
  3. EXFORGE HCT [Suspect]
     Active Substance: AMLODIPINE BESYLATE\HYDROCHLOROTHIAZIDE\VALSARTAN
     Dosage: 1 DF (AMLODIPINE 10 MG AND VALSARTAN 320 MG), UNK
     Route: 065
  4. EXFORGE HCT [Suspect]
     Active Substance: AMLODIPINE BESYLATE\HYDROCHLOROTHIAZIDE\VALSARTAN
     Dosage: 0.5 (AMLODIPINE 10 MG AND VALSARTAN 320 MG), IN THE MORNING (SINCE 5 YEARS AGO)
     Route: 065
  5. EXFORGE HCT [Suspect]
     Active Substance: AMLODIPINE BESYLATE\HYDROCHLOROTHIAZIDE\VALSARTAN
     Dosage: 1 DOSAGE FORM, Q3W (10/320/25 MG)
     Route: 048
     Dates: start: 20211212
  6. LEVOTHYROXINE [Concomitant]
     Active Substance: LEVOTHYROXINE
     Indication: Blood thyroid stimulating hormone decreased
     Route: 065
  7. METOPROLOL [Concomitant]
     Active Substance: METOPROLOL
     Indication: Product used for unknown indication
     Dosage: 1 OT, QD
     Route: 065
  8. ADALAT [Concomitant]
     Active Substance: NIFEDIPINE
     Indication: Product used for unknown indication
     Dosage: 1 OT, QD
     Route: 065

REACTIONS (21)
  - Thyroid cancer [Recovered/Resolved]
  - Fatigue [Unknown]
  - Sensation of foreign body [Unknown]
  - Chills [Unknown]
  - Cerebrovascular accident [Recovered/Resolved with Sequelae]
  - Intracranial aneurysm [Unknown]
  - Thyroid cancer [Recovered/Resolved]
  - Salivary gland enlargement [Unknown]
  - Lymphadenitis [Unknown]
  - Feeling abnormal [Unknown]
  - Aptyalism [Unknown]
  - Pain in extremity [Unknown]
  - Malaise [Unknown]
  - Pain [Unknown]
  - Inflammation [Unknown]
  - Blood potassium decreased [Recovered/Resolved]
  - Sensory loss [Unknown]
  - Blood pressure increased [Unknown]
  - Headache [Unknown]
  - Wrong technique in product usage process [Unknown]
  - Off label use [Unknown]

NARRATIVE: CASE EVENT DATE: 20120101
